FAERS Safety Report 7508839-0 (Version None)
Quarter: 2011Q2

REPORT INFORMATION
  Report Type: 
  Country: None (occurrence: None)
  Receive Date: 20110527
  Receipt Date: 20110520
  Transmission Date: 20111010
  Serious: Yes (Other)
  Sender: FDA-Public Use
  Company Number: PHHY2011US44258

PATIENT

DRUGS (1)
  1. FORADIL [Suspect]

REACTIONS (1)
  - NEOPLASM [None]
